FAERS Safety Report 4835788-9 (Version None)
Quarter: 2005Q4

REPORT INFORMATION
  Report Type: 
  Country: None (occurrence: None)
  Receive Date: 20051123
  Receipt Date: 20051118
  Transmission Date: 20060501
  Serious: Yes (Hospitalization)
  Sender: FDA-Public Use
  Company Number: JP-JPN-A20052826

PATIENT
  Sex: Male

DRUGS (2)
  1. PAXIL [Suspect]
     Indication: DEPRESSION
     Route: 048
  2. EUGLUCON [Concomitant]
     Route: 048

REACTIONS (1)
  - HYPOGLYCAEMIC COMA [None]
